FAERS Safety Report 4475922-6 (Version None)
Quarter: 2004Q4

REPORT INFORMATION
  Report Type: 
  Country: None (occurrence: None)
  Receive Date: 20041012
  Receipt Date: 20040929
  Transmission Date: 20050328
  Serious: Yes (Hospitalization)
  Sender: FDA-Public Use
  Company Number: 2004056550

PATIENT
  Sex: Female
  Weight: 43 kg

DRUGS (1)
  1. ZOLOFT [Suspect]
     Indication: OBSESSIVE-COMPULSIVE DISORDER
     Dosage: 200 MG 9200 MG, 1 IN 1 D), ORAL
     Route: 048
     Dates: start: 20020701

REACTIONS (3)
  - BENIGN INTRACRANIAL HYPERTENSION [None]
  - STRABISMUS [None]
  - WEIGHT INCREASED [None]
